FAERS Safety Report 7310686-X (Version None)
Quarter: 2011Q1

REPORT INFORMATION
  Report Type: 
  Country: None (occurrence: None)
  Receive Date: 20110224
  Receipt Date: 20110214
  Transmission Date: 20110831
  Serious: Yes (Hospitalization)
  Sender: FDA-Public Use
  Company Number: FR-SANOFI-AVENTIS-2011SA009565

PATIENT
  Age: 77 Year
  Sex: Female

DRUGS (7)
  1. ASPIRIN [Concomitant]
     Indication: ATRIAL FIBRILLATION
     Route: 065
  2. SPASFON [Suspect]
     Route: 048
     Dates: start: 20101031, end: 20101108
  3. STABLON [Concomitant]
     Indication: DEPRESSION
     Route: 048
  4. CYMBALTA [Concomitant]
     Indication: DEPRESSION
     Route: 048
  5. LOVENOX [Suspect]
     Route: 058
     Dates: start: 20101101, end: 20101108
  6. FLECAINE [Concomitant]
     Indication: ATRIAL FIBRILLATION
     Route: 065
  7. EFFERALGAN CODEINE [Suspect]
     Route: 048
     Dates: start: 20101101, end: 20101108

REACTIONS (2)
  - HEPATITIS [None]
  - CHOLESTATIC LIVER INJURY [None]
